FAERS Safety Report 22176069 (Version 2)
Quarter: 2023Q2

REPORT INFORMATION
  Report Type: Spontaneous
  Country: CA (occurrence: CA)
  Receive Date: 20230405
  Receipt Date: 20230406
  Transmission Date: 20230722
  Serious: Yes (Other)
  Sender: FDA-Public Use
  Company Number: CA-ABBVIE-4716335

PATIENT
  Age: 39 Year
  Sex: Female

DRUGS (1)
  1. ORILISSA [Suspect]
     Active Substance: ELAGOLIX SODIUM
     Indication: Product used for unknown indication
     Dosage: 1 PILL IN THE AM
     Route: 048
     Dates: start: 20230322, end: 20230403

REACTIONS (4)
  - Generalised tonic-clonic seizure [Recovered/Resolved]
  - Epileptic aura [Not Recovered/Not Resolved]
  - Epilepsy [Unknown]
  - Seizure [Recovered/Resolved]

NARRATIVE: CASE EVENT DATE: 20230324
